FAERS Safety Report 24268603 (Version 2)
Quarter: 2024Q4

REPORT INFORMATION
  Report Type: Spontaneous
  Country: US (occurrence: US)
  Receive Date: 20240830
  Receipt Date: 20241010
  Transmission Date: 20250114
  Serious: No
  Sender: MERCK
  Company Number: US-009507513-2408USA009057

PATIENT
  Sex: Female

DRUGS (1)
  1. BELSOMRA [Suspect]
     Active Substance: SUVOREXANT
     Dosage: 2 DOSAGE FORM, QD
     Route: 048

REACTIONS (6)
  - Memory impairment [Unknown]
  - Middle insomnia [Unknown]
  - Shoulder fracture [Unknown]
  - Fall [Unknown]
  - Overdose [Unknown]
  - Product packaging quantity issue [Unknown]

NARRATIVE: CASE EVENT DATE: 20240825
